FAERS Safety Report 14563270 (Version 1)
Quarter: 2018Q1

REPORT INFORMATION
  Report Type: Spontaneous
  Country: US (occurrence: US)
  Receive Date: 20180222
  Receipt Date: 20180222
  Transmission Date: 20180509
  Serious: No
  Sender: FDA-Public Use
  Company Number: None

PATIENT
  Age: 63 Year
  Sex: Male
  Weight: 78.75 kg

DRUGS (1)
  1. ROPINIROLE. [Suspect]
     Active Substance: ROPINIROLE
     Indication: NERVE INJURY
     Dosage: QUANTITY:30 TABLET(S); AT BEDTIME?
     Route: 048
     Dates: start: 20180118, end: 20180221

REACTIONS (5)
  - Therapy cessation [None]
  - Paraesthesia [None]
  - Muscle spasms [None]
  - Muscular weakness [None]
  - Arthropathy [None]
